FAERS Safety Report 16226218 (Version 1)
Quarter: 2019Q2

REPORT INFORMATION
  Report Type: Spontaneous
  Country: TR (occurrence: TR)
  Receive Date: 20190423
  Receipt Date: 20190423
  Transmission Date: 20190711
  Serious: Yes (Hospitalization, Other)
  Sender: FDA-Public Use
  Company Number: TR-SUN PHARMACEUTICAL INDUSTRIES LTD-2018R1-187934

PATIENT
  Age: 24 Year
  Sex: Male

DRUGS (6)
  1. MODAFINIL. [Suspect]
     Active Substance: MODAFINIL
     Indication: ATTENTION DEFICIT/HYPERACTIVITY DISORDER
     Dosage: UNK (100 MG TABLETS, 5 TIMES A DAY AND 10 TABLETS)
     Route: 065
  2. METHYLPHENIDATE. [Suspect]
     Active Substance: METHYLPHENIDATE
     Indication: ATTENTION DEFICIT/HYPERACTIVITY DISORDER
     Dosage: 20 MILLIGRAM, DAILY
     Route: 065
  3. MODAFINIL. [Suspect]
     Active Substance: MODAFINIL
     Dosage: UNK (5,000 MG/DAY SINCE 1 MONTH)
     Route: 065
  4. MODAFINIL. [Suspect]
     Active Substance: MODAFINIL
     Indication: ATTENTION DEFICIT/HYPERACTIVITY DISORDER
     Dosage: 50 MILLIGRAM, DAILY (3 YEARS AGO)
     Route: 065
  5. MODAFINIL. [Suspect]
     Active Substance: MODAFINIL
     Dosage: UNK 300-400 MD/DAY DURING 2 YEARS
     Route: 065
  6. METHYLPHENIDATE. [Suspect]
     Active Substance: METHYLPHENIDATE
     Dosage: 60 MILLIGRAM, DAILY
     Route: 065

REACTIONS (13)
  - Anxiety [Recovering/Resolving]
  - Intentional overdose [Unknown]
  - Treatment noncompliance [Unknown]
  - Loss of personal independence in daily activities [Recovering/Resolving]
  - Sleep disorder [Recovering/Resolving]
  - Hyperhidrosis [Recovering/Resolving]
  - Substance use disorder [Unknown]
  - Drug dependence [Unknown]
  - Irritability [Recovering/Resolving]
  - Tremor [Recovering/Resolving]
  - Fatigue [Recovering/Resolving]
  - Abnormal dreams [Recovering/Resolving]
  - Drug abuse [Unknown]
